FAERS Safety Report 6454764-6 (Version None)
Quarter: 2009Q4

REPORT INFORMATION
  Report Type: 
  Country: None (occurrence: None)
  Receive Date: 20091124
  Receipt Date: 20091117
  Transmission Date: 20100525
  Serious: Yes (Hospitalization)
  Sender: FDA-Public Use
  Company Number: US-ELI_LILLY_AND_COMPANY-US200910006051

PATIENT
  Sex: Male
  Weight: 80.3 kg

DRUGS (14)
  1. GEMCITABINE HCL [Suspect]
     Indication: BLADDER CANCER
     Dosage: UNK, UNK
     Dates: start: 20090928, end: 20090928
  2. GEMCITABINE HCL [Suspect]
     Dosage: UNK, UNK
     Dates: start: 20091028
  3. CETUXIMAB [Suspect]
     Indication: BLADDER CANCER
     Dosage: 985 MG, UNK
     Route: 042
     Dates: start: 20090928, end: 20090928
  4. CETUXIMAB [Suspect]
     Dosage: UNK, UNK
     Dates: start: 20091028
  5. CISPLATIN [Suspect]
     Indication: BLADDER CANCER
     Dosage: UNK, UNK
     Dates: start: 20090928, end: 20090928
  6. CISPLATIN [Suspect]
     Dosage: UNK, UNK
     Dates: start: 20091028
  7. OXYCONTIN [Concomitant]
     Indication: PAIN
     Dosage: 10 MG, 2/D
  8. DARVOCET [Concomitant]
     Indication: PAIN
     Dosage: UNK, AS NEEDED
  9. METFORMIN [Concomitant]
     Indication: DIABETES MELLITUS
     Dosage: 500 MG, 2/D
     Dates: end: 20091001
  10. CADUET [Concomitant]
  11. AMBIEN [Concomitant]
     Indication: INSOMNIA
     Dosage: 5 MG, DAILY (1/D)
  12. GABAPENTIN [Concomitant]
     Indication: INSOMNIA
     Dosage: 600 MG, EACH EVENING
  13. AZITHROMYCIN [Concomitant]
     Indication: PNEUMONIA
     Dates: start: 20091012, end: 20091001
  14. INSULIN [Concomitant]
     Indication: DIABETES MELLITUS
     Dates: start: 20091001

REACTIONS (3)
  - BLOOD CREATININE INCREASED [None]
  - PNEUMONIA [None]
  - URINARY TRACT INFECTION [None]
